FAERS Safety Report 23571198 (Version 2)
Quarter: 2024Q2

REPORT INFORMATION
  Report Type: Report from Study
  Country: US (occurrence: US)
  Receive Date: 20240227
  Receipt Date: 20240401
  Transmission Date: 20240716
  Serious: Yes (Death, Other)
  Sender: FDA-Public Use
  Company Number: US-JNJFOC-20240267792

PATIENT
  Age: 24 Year
  Sex: Female
  Weight: 108.96 kg

DRUGS (11)
  1. SPRAVATO [Suspect]
     Active Substance: ESKETAMINE
     Indication: Depression
     Dosage: 56 MG, 6 TOTAL DOSES
     Dates: start: 20231116, end: 20231204
  2. SPRAVATO [Suspect]
     Active Substance: ESKETAMINE
     Dosage: 84 MG, 3 TOTAL DOSES
     Dates: start: 20231213, end: 20240125
  3. LUVOX [Concomitant]
     Active Substance: FLUVOXAMINE MALEATE
     Indication: Depression
     Dosage: PRIOR TO INITIAL
     Route: 048
  4. LUVOX [Concomitant]
     Active Substance: FLUVOXAMINE MALEATE
     Indication: Anxiety
  5. ZENZEDI [Concomitant]
     Active Substance: DEXTROAMPHETAMINE SULFATE
     Indication: Attention deficit hyperactivity disorder
     Route: 048
     Dates: start: 202312
  6. ELAVIL [Concomitant]
     Active Substance: AMITRIPTYLINE HYDROCHLORIDE
     Indication: Anxiety disorder
     Route: 048
     Dates: start: 20230612
  7. ELAVIL [Concomitant]
     Active Substance: AMITRIPTYLINE HYDROCHLORIDE
     Indication: Depression
  8. ELAVIL [Concomitant]
     Active Substance: AMITRIPTYLINE HYDROCHLORIDE
     Indication: Sleep disorder
  9. LATUDA [Concomitant]
     Active Substance: LURASIDONE HYDROCHLORIDE
     Indication: Depression
     Dosage: PRIOR TO INITIAL
     Route: 048
     Dates: end: 202311
  10. LITHIUM [Concomitant]
     Active Substance: LITHIUM
     Indication: Depression
     Route: 048
     Dates: start: 202310, end: 202311
  11. LITHIUM [Concomitant]
     Active Substance: LITHIUM
     Indication: Mood swings

REACTIONS (5)
  - Overdose [Fatal]
  - Suicidal ideation [Unknown]
  - Depression [Unknown]
  - Insomnia [Unknown]
  - Anxiety [Unknown]

NARRATIVE: CASE EVENT DATE: 20240218
